FAERS Safety Report 17011708 (Version 2)
Quarter: 2019Q4

REPORT INFORMATION
  Report Type: Report from Study
  Country: US (occurrence: US)
  Receive Date: 20191108
  Receipt Date: 20191219
  Transmission Date: 20200122
  Serious: Yes (Other)
  Sender: FDA-Public Use
  Company Number: US-BIOGEN-2019BI00737649

PATIENT
  Age: 59 Year
  Sex: Female

DRUGS (3)
  1. TYSABRI [Suspect]
     Active Substance: NATALIZUMAB
     Dosage: INFUSED OVER 1 HOUR
     Route: 042
     Dates: start: 20180611
  2. TYSABRI [Suspect]
     Active Substance: NATALIZUMAB
     Indication: MULTIPLE SCLEROSIS
     Dosage: INFUSED OVER 1 HOUR
     Route: 042
     Dates: start: 20141031, end: 20170904
  3. TYSABRI [Suspect]
     Active Substance: NATALIZUMAB
     Dosage: INFUSED OVER 1 HOUR
     Route: 042

REACTIONS (11)
  - Influenza like illness [Recovered/Resolved]
  - Fibula fracture [Not Recovered/Not Resolved]
  - Clumsiness [Not Recovered/Not Resolved]
  - Fatigue [Not Recovered/Not Resolved]
  - Urinary tract infection enterococcal [Recovered/Resolved]
  - Kidney infection [Recovered/Resolved]
  - Malaise [Recovered/Resolved]
  - Foot fracture [Not Recovered/Not Resolved]
  - Balance disorder [Not Recovered/Not Resolved]
  - Foot fracture [Not Recovered/Not Resolved]
  - Urosepsis [Recovered/Resolved]

NARRATIVE: CASE EVENT DATE: 201708
